FAERS Safety Report 17290856 (Version 1)
Quarter: 2020Q1

REPORT INFORMATION
  Report Type: Spontaneous
  Country: GB (occurrence: GB)
  Receive Date: 20200121
  Receipt Date: 20200121
  Transmission Date: 20200409
  Serious: Yes (Other)
  Sender: FDA-Public Use
  Company Number: GB-TEVA-2020-GB-1170092

PATIENT
  Age: 50 Year
  Sex: Female
  Weight: 65 kg

DRUGS (3)
  1. PREDNISOLONE. [Suspect]
     Active Substance: PREDNISOLONE
     Indication: NASOPHARYNGITIS
     Dosage: FOR 5 DAYS :40 MILLIGRAM
     Route: 048
     Dates: start: 20191219, end: 20191221
  2. TESTOSTERONE. [Concomitant]
     Active Substance: TESTOSTERONE
  3. ESTROGENS CONJUGATED [Concomitant]
     Active Substance: ESTROGENS, CONJUGATED

REACTIONS (2)
  - Insomnia [Not Recovered/Not Resolved]
  - Muscle discomfort [Not Recovered/Not Resolved]

NARRATIVE: CASE EVENT DATE: 20191219
